FAERS Safety Report 5626147-X (Version None)
Quarter: 2008Q1

REPORT INFORMATION
  Report Type: 
  Country: None (occurrence: None)
  Receive Date: 20080213
  Receipt Date: 20080213
  Transmission Date: 20080703
  Serious: Yes (Life-Threatening)
  Sender: FDA-Public Use
  Company Number: None

PATIENT
  Age: 66 Year
  Sex: Female
  Weight: 74.6 kg

DRUGS (2)
  1. FENTANYL-100 [Suspect]
     Indication: CANCER PAIN
     Dosage: 25 MCG EXCESS Q72HR TRANSDERMAL 11/21 @ 2100 UNTIL 11/24 @ 1611
     Route: 062
     Dates: start: 20071121, end: 20071124
  2. FENTANYL-100 [Suspect]
     Indication: LUNG NEOPLASM MALIGNANT
     Dosage: 25 MCG EXCESS Q72HR TRANSDERMAL 11/21 @ 2100 UNTIL 11/24 @ 1611
     Route: 062
     Dates: start: 20071121, end: 20071124

REACTIONS (4)
  - INCORRECT DOSE ADMINISTERED [None]
  - OXYGEN SATURATION DECREASED [None]
  - SOMNOLENCE [None]
  - WRONG TECHNIQUE IN DRUG USAGE PROCESS [None]
